FAERS Safety Report 8374540-7 (Version None)
Quarter: 2012Q2

REPORT INFORMATION
  Report Type: 
  Country: None (occurrence: None)
  Receive Date: 20120521
  Receipt Date: 20120516
  Transmission Date: 20120825
  Serious: Yes (Other)
  Sender: FDA-Public Use
  Company Number: US-PFIZER INC-2012061317

PATIENT
  Sex: Female
  Weight: 81.633 kg

DRUGS (6)
  1. VITAMIN B-12 [Concomitant]
     Indication: URINARY TRACT DISORDER
     Dosage: UNK
  2. LYRICA [Suspect]
     Indication: NEUROPATHY PERIPHERAL
     Dosage: 50 MG, 1X/DAY
     Dates: start: 20120401, end: 20120401
  3. LYRICA [Suspect]
     Indication: FIBROMYALGIA
     Dosage: 50 MG, 2X/DAY
     Dates: start: 20120401
  4. LORAZEPAM [Concomitant]
     Indication: ANXIETY
     Dosage: 2 MG, AS NEEDED
  5. FIORINAL [Concomitant]
     Indication: PAIN
     Dosage: UNK, AS NEEDED
  6. ALBUTEROL [Concomitant]
     Indication: ASTHMA
     Dosage: UNK, AS NEEDED

REACTIONS (18)
  - VISION BLURRED [None]
  - DIZZINESS [None]
  - HEADACHE [None]
  - FIBROMYALGIA [None]
  - ASTHENIA [None]
  - BEDRIDDEN [None]
  - LACRIMATION INCREASED [None]
  - EYE SWELLING [None]
  - NEUROPATHY PERIPHERAL [None]
  - MIGRAINE [None]
  - SOMNOLENCE [None]
  - HYPOTENSION [None]
  - DRUG INEFFECTIVE [None]
  - DEPRESSION [None]
  - PAIN [None]
  - ANXIETY [None]
  - INSOMNIA [None]
  - CRYING [None]
